FAERS Safety Report 17007200 (Version 1)
Quarter: 2019Q4

REPORT INFORMATION
  Report Type: Spontaneous
  Country: US (occurrence: US)
  Receive Date: 20191107
  Receipt Date: 20191107
  Transmission Date: 20200122
  Serious: No
  Sender: FDA-Public Use
  Company Number: US-B.I. PHARMACEUTICALS,INC./RIDGEFIELD-2019-US-112690

PATIENT
  Age: 72 Year
  Sex: Female

DRUGS (1)
  1. ATROVENT [Suspect]
     Active Substance: IPRATROPIUM BROMIDE
     Indication: BRONCHITIS
     Dosage: 2 INHALATIONS, 4 TIMES DAILY
     Route: 065
     Dates: start: 20191107

REACTIONS (1)
  - Pulmonary pain [Not Recovered/Not Resolved]

NARRATIVE: CASE EVENT DATE: 20191107
